FAERS Safety Report 22128054 (Version 2)
Quarter: 2023Q2

REPORT INFORMATION
  Report Type: Report from Study
  Country: CA (occurrence: None)
  Receive Date: 20230323
  Receipt Date: 20230422
  Transmission Date: 20230722
  Serious: Yes (Hospitalization)
  Sender: FDA-Public Use
  Company Number: CA-ROCHE-2528719

PATIENT
  Age: 63 Year
  Sex: Male
  Weight: 83.9 kg

DRUGS (74)
  1. MOSUNETUZUMAB [Suspect]
     Active Substance: MOSUNETUZUMAB
     Indication: B-cell lymphoma
     Dosage: THE DATE OF MOST RECENT DOSE OF MOSUNETUZUMAB (30 MG) PRIOR TO AE ONSET: 24/DEC/2019 AT 11.17.?ON 24
     Route: 042
     Dates: start: 20190624
  2. MOSUNETUZUMAB [Suspect]
     Active Substance: MOSUNETUZUMAB
     Indication: Chronic lymphocytic leukaemia
  3. LORAZEPAM [Concomitant]
     Active Substance: LORAZEPAM
     Route: 060
     Dates: start: 20200213, end: 20200213
  4. LORAZEPAM [Concomitant]
     Active Substance: LORAZEPAM
     Route: 050
     Dates: start: 20200129, end: 20200129
  5. ASPIRIN [Concomitant]
     Active Substance: ASPIRIN
     Route: 048
     Dates: start: 2009
  6. EZETIMIBE [Concomitant]
     Active Substance: EZETIMIBE
     Indication: Blood cholesterol increased
     Route: 048
     Dates: start: 2016, end: 20200115
  7. EZETIMIBE [Concomitant]
     Active Substance: EZETIMIBE
     Route: 048
     Dates: start: 20200407, end: 202007
  8. ANUSOL CREAM [Concomitant]
     Indication: Haemorrhoids
     Route: 061
     Dates: start: 20190707, end: 20200116
  9. ROSUVASTATIN [Concomitant]
     Active Substance: ROSUVASTATIN
     Indication: Blood cholesterol increased
     Route: 048
     Dates: start: 20190729, end: 20200115
  10. PREDNISONE [Concomitant]
     Active Substance: PREDNISONE
     Indication: Arthralgia
     Route: 048
     Dates: start: 20191211, end: 20191217
  11. PREDNISONE [Concomitant]
     Active Substance: PREDNISONE
     Indication: Arthritis
     Route: 048
     Dates: start: 20191218, end: 20191222
  12. PREDNISONE [Concomitant]
     Active Substance: PREDNISONE
     Route: 048
     Dates: start: 20191224, end: 20191228
  13. PREDNISONE [Concomitant]
     Active Substance: PREDNISONE
     Route: 048
     Dates: start: 20191229, end: 20200102
  14. PREDNISONE [Concomitant]
     Active Substance: PREDNISONE
     Route: 048
     Dates: start: 20200103, end: 20200104
  15. DEXAMETHASONE [Concomitant]
     Active Substance: DEXAMETHASONE
     Indication: Premedication
     Route: 042
     Dates: start: 20191224, end: 20191224
  16. DEXAMETHASONE [Concomitant]
     Active Substance: DEXAMETHASONE
     Dates: start: 20200130, end: 20200201
  17. DEXAMETHASONE [Concomitant]
     Active Substance: DEXAMETHASONE
     Route: 048
     Dates: start: 20200202, end: 20200202
  18. DEXAMETHASONE [Concomitant]
     Active Substance: DEXAMETHASONE
     Route: 048
     Dates: start: 20200203, end: 20200203
  19. DEXAMETHASONE [Concomitant]
     Active Substance: DEXAMETHASONE
     Route: 048
     Dates: start: 20200204, end: 20200204
  20. DEXAMETHASONE [Concomitant]
     Active Substance: DEXAMETHASONE
     Route: 048
     Dates: start: 20200205, end: 20200205
  21. NAPROXEN [Concomitant]
     Active Substance: NAPROXEN
     Indication: Arthritis
     Route: 048
     Dates: start: 20191209, end: 20200115
  22. METOPROLOL [Concomitant]
     Active Substance: METOPROLOL
     Indication: Hypertension
     Route: 048
     Dates: start: 20191217, end: 20200111
  23. METOPROLOL [Concomitant]
     Active Substance: METOPROLOL
     Route: 048
     Dates: start: 20200112, end: 20200115
  24. METOPROLOL [Concomitant]
     Active Substance: METOPROLOL
     Route: 048
     Dates: start: 20200116, end: 20200124
  25. OSELTAMIVIR [Concomitant]
     Active Substance: OSELTAMIVIR
     Indication: Pneumonia
     Route: 048
     Dates: start: 20200109, end: 20200113
  26. ACETAMINOPHEN [Concomitant]
     Active Substance: ACETAMINOPHEN
     Indication: Pyrexia
     Route: 048
     Dates: start: 20200116, end: 20200118
  27. ACETAMINOPHEN [Concomitant]
     Active Substance: ACETAMINOPHEN
     Route: 048
     Dates: start: 20200124, end: 20200128
  28. ZINC SULFATE [Concomitant]
     Active Substance: ZINC SULFATE
     Indication: Haemorrhoids
     Route: 054
     Dates: start: 20200217, end: 20200304
  29. HYDROCORTISONE;LIDOCAINE [Concomitant]
     Indication: Haemorrhoids
     Route: 061
     Dates: start: 20200220, end: 20200303
  30. ROSUVASTATIN [Concomitant]
     Active Substance: ROSUVASTATIN
     Indication: Blood cholesterol increased
     Route: 048
     Dates: start: 20200116, end: 20200804
  31. GRAVOL [Concomitant]
     Active Substance: DIMENHYDRINATE
     Indication: Nausea
     Route: 042
     Dates: start: 20200118, end: 20200118
  32. GRAVOL [Concomitant]
     Active Substance: DIMENHYDRINATE
     Route: 048
     Dates: start: 20200204, end: 20200204
  33. ONDANSETRON [Concomitant]
     Active Substance: ONDANSETRON
     Indication: Nausea
     Route: 042
     Dates: start: 20200119, end: 20200122
  34. ONDANSETRON [Concomitant]
     Active Substance: ONDANSETRON
     Route: 042
     Dates: start: 20200123, end: 20200203
  35. ONDANSETRON [Concomitant]
     Active Substance: ONDANSETRON
     Route: 042
     Dates: start: 20200204, end: 20200204
  36. ONDANSETRON [Concomitant]
     Active Substance: ONDANSETRON
     Route: 042
     Dates: start: 20200204, end: 20200304
  37. METOCLOPRAMIDE [Concomitant]
     Active Substance: METOCLOPRAMIDE
     Indication: Nausea
     Route: 048
     Dates: start: 20200207, end: 20200304
  38. SENNOSIDES [Concomitant]
     Active Substance: SENNOSIDES
     Indication: Constipation
     Route: 048
     Dates: start: 20200119, end: 20200219
  39. SENNOSIDES [Concomitant]
     Active Substance: SENNOSIDES
     Route: 048
     Dates: start: 20200220, end: 20200223
  40. SENNOSIDES [Concomitant]
     Active Substance: SENNOSIDES
     Route: 048
     Dates: start: 20200224, end: 20200225
  41. SENNOSIDES [Concomitant]
     Active Substance: SENNOSIDES
     Route: 048
     Dates: start: 20200226, end: 20200304
  42. LACTULOSE [Concomitant]
     Active Substance: LACTULOSE
     Indication: Constipation
     Route: 048
     Dates: start: 20200120, end: 20200120
  43. HIGH DENSITY POLYETHYLENE [Concomitant]
     Active Substance: HIGH DENSITY POLYETHYLENE
     Indication: Constipation
     Route: 048
     Dates: start: 20200120, end: 20200216
  44. HIGH DENSITY POLYETHYLENE [Concomitant]
     Active Substance: HIGH DENSITY POLYETHYLENE
     Route: 048
     Dates: start: 20200217, end: 20200218
  45. HIGH DENSITY POLYETHYLENE [Concomitant]
     Active Substance: HIGH DENSITY POLYETHYLENE
     Route: 048
     Dates: start: 20200220, end: 20200304
  46. HIGH DENSITY POLYETHYLENE [Concomitant]
     Active Substance: HIGH DENSITY POLYETHYLENE
     Route: 048
     Dates: start: 20200304, end: 202003
  47. SODIUM CITRATE\SODIUM LAURYL SULFOACETATE\SORBITOL [Concomitant]
     Active Substance: SODIUM CITRATE\SODIUM LAURYL SULFOACETATE\SORBITOL
     Indication: Constipation
     Route: 054
     Dates: start: 20200207, end: 20200207
  48. DOCUSATE [Concomitant]
     Active Substance: DOCUSATE
     Indication: Constipation
     Route: 048
     Dates: start: 20200220
  49. PSYLLIUM [Concomitant]
     Active Substance: PLANTAGO SEED
     Indication: Constipation
     Route: 048
     Dates: start: 20200220, end: 20200304
  50. METAMUCIL [Concomitant]
     Active Substance: PLANTAGO SEED
     Indication: Constipation
     Route: 048
     Dates: start: 20200304
  51. DOXYCYCLINE [Concomitant]
     Active Substance: DOXYCYCLINE
     Indication: Pneumonia staphylococcal
     Route: 048
     Dates: start: 20200120, end: 20200126
  52. K-DUR [Concomitant]
     Active Substance: POTASSIUM CHLORIDE
     Indication: Hypokalaemia
     Dosage: 60 OTHER
     Route: 048
     Dates: start: 20200116, end: 20200116
  53. K-DUR [Concomitant]
     Active Substance: POTASSIUM CHLORIDE
     Dosage: 20 OTHER
     Route: 048
     Dates: start: 20200119, end: 20200119
  54. K-DUR [Concomitant]
     Active Substance: POTASSIUM CHLORIDE
     Dosage: 40 OTHER
     Route: 048
     Dates: start: 20200125, end: 20200125
  55. PANTOPRAZOLE [Concomitant]
     Active Substance: PANTOPRAZOLE
     Indication: Gastrooesophageal reflux disease
     Route: 048
     Dates: start: 20200205
  56. IVIGLOB EX [Concomitant]
     Active Substance: HUMAN IMMUNOGLOBULIN G
     Indication: Blood immunoglobulin G decreased
     Route: 042
     Dates: start: 20200214, end: 20200214
  57. VALPROIC ACID [Concomitant]
     Active Substance: VALPROIC ACID
     Indication: Myoclonic epilepsy
     Route: 048
     Dates: start: 20200127, end: 20200303
  58. PROPOFOL [Concomitant]
     Active Substance: PROPOFOL
     Route: 065
     Dates: start: 20200116, end: 20200116
  59. PIPERACILLIN AND TAZOBACTAM [Concomitant]
     Active Substance: PIPERACILLIN SODIUM\TAZOBACTAM SODIUM
     Indication: Bacterial infection
     Route: 042
     Dates: start: 20200125, end: 20200127
  60. THIAMINE [Concomitant]
     Active Substance: THIAMINE
     Dates: start: 20200116, end: 20200118
  61. THIAMINE [Concomitant]
     Active Substance: THIAMINE
     Route: 048
     Dates: start: 20200207, end: 20200216
  62. AMPICILLIN [Concomitant]
     Active Substance: AMPICILLIN
     Indication: Meningitis
     Route: 042
     Dates: start: 20200125, end: 20200126
  63. AMPICILLIN [Concomitant]
     Active Substance: AMPICILLIN
     Route: 042
     Dates: start: 20200127, end: 20200127
  64. VANCOMYCIN [Concomitant]
     Active Substance: VANCOMYCIN
     Indication: Meningitis
     Route: 042
     Dates: start: 20200125, end: 20200127
  65. VANCOMYCIN [Concomitant]
     Active Substance: VANCOMYCIN
     Route: 042
     Dates: start: 20200116, end: 20200116
  66. ACYCLOVIR [Concomitant]
     Active Substance: ACYCLOVIR
     Indication: Meningitis
     Route: 042
     Dates: start: 20200126, end: 20200131
  67. CEFTRIAXONE [Concomitant]
     Active Substance: CEFTRIAXONE
     Indication: Meningitis
     Route: 042
     Dates: start: 20200127, end: 20200130
  68. CEFTRIAXONE [Concomitant]
     Active Substance: CEFTRIAXONE
     Route: 042
     Dates: start: 20200116, end: 20200131
  69. FUROSEMIDE [Concomitant]
     Active Substance: FUROSEMIDE
     Route: 048
     Dates: start: 20200326, end: 20200328
  70. NYSTATIN [Concomitant]
     Active Substance: NYSTATIN
     Indication: Candida infection
     Route: 048
     Dates: start: 20200204, end: 20200217
  71. ADVIL [Concomitant]
     Active Substance: IBUPROFEN
     Indication: Pain
     Route: 048
     Dates: start: 20200212, end: 20200304
  72. TYLENOL WITH CODEINE [Concomitant]
     Active Substance: ACETAMINOPHEN\CODEINE PHOSPHATE
     Indication: Pain
     Route: 048
     Dates: start: 20200220, end: 20200303
  73. CENTRUM FORTE [Concomitant]
     Route: 048
     Dates: start: 20200207, end: 20200216
  74. ENOXAPARIN [Concomitant]
     Active Substance: ENOXAPARIN
     Route: 058
     Dates: start: 20200112, end: 20200225

REACTIONS (2)
  - Encephalopathy [Recovered/Resolved]
  - Insomnia [Not Recovered/Not Resolved]

NARRATIVE: CASE EVENT DATE: 20200116
